FAERS Safety Report 7230977-0 (Version None)
Quarter: 2011Q1

REPORT INFORMATION
  Report Type: 
  Country: None (occurrence: None)
  Receive Date: 20110118
  Receipt Date: 20110113
  Transmission Date: 20110831
  Serious: Yes (Other)
  Sender: FDA-Public Use
  Company Number: FR-ABBOTT-11P-056-0697294-00

PATIENT
  Age: 45 Year
  Sex: Male

DRUGS (2)
  1. QUESTRAN [Concomitant]
     Indication: HYPERBILIRUBINAEMIA
     Dates: start: 20100401
  2. HUMIRA [Suspect]
     Indication: CROHN'S DISEASE
     Route: 058
     Dates: start: 20100401

REACTIONS (2)
  - HYPERBILIRUBINAEMIA [None]
  - JAUNDICE [None]
